FAERS Safety Report 7054326-6 (Version None)
Quarter: 2010Q4

REPORT INFORMATION
  Report Type: 
  Country: None (occurrence: None)
  Receive Date: 20101015
  Receipt Date: 20101004
  Transmission Date: 20110411
  Serious: Yes (Disabling)
  Sender: FDA-Public Use
  Company Number: AUR-APL-2010-02458

PATIENT
  Age: 75 Year
  Sex: Male
  Weight: 95 kg

DRUGS (6)
  1. SIMVASTATIN [Suspect]
     Dosage: 20MG-ORAL
     Route: 048
     Dates: start: 20090416, end: 20090820
  2. ASPIRIN [Concomitant]
  3. EZETIMIBE [Concomitant]
  4. IRBESARTAN [Concomitant]
  5. LANTUS [Concomitant]
  6. NOVORAPID [Concomitant]

REACTIONS (1)
  - GAIT DISTURBANCE [None]
